FAERS Safety Report 23951450 (Version 1)
Quarter: 2024Q2

REPORT INFORMATION
  Report Type: Spontaneous
  Country: US (occurrence: None)
  Receive Date: 20240607
  Receipt Date: 20240607
  Transmission Date: 20240715
  Serious: Yes (Hospitalization)
  Sender: FDA-Public Use
  Company Number: None

PATIENT
  Age: 76 Year
  Sex: Female

DRUGS (1)
  1. NIRMATRELVIR\RITONAVIR [Suspect]
     Active Substance: NIRMATRELVIR\RITONAVIR
     Dosage: TAKE 2 TABLETS OF NIRMATRELVIR 150MG AND 1 TAB OF RITONAVIR BY MOUTH TWICE A DAY FOR MILD-MODERATE C
     Dates: start: 20240520, end: 20240525

REACTIONS (6)
  - Urinary tract infection [None]
  - Dizziness [None]
  - Dysgeusia [None]
  - Dizziness [None]
  - Dehydration [None]
  - Decreased appetite [None]

NARRATIVE: CASE EVENT DATE: 20240524
